FAERS Safety Report 15878744 (Version 1)
Quarter: 2019Q1

REPORT INFORMATION
  Report Type: Spontaneous
  Country: US (occurrence: US)
  Receive Date: 20190102
  Receipt Date: 20190102
  Transmission Date: 20190417
  Serious: Yes (Hospitalization)
  Sender: FDA-Public Use
  Company Number: None

PATIENT
  Age: 90 Year
  Sex: Female
  Weight: 65 kg

DRUGS (1)
  1. IMATINIB. [Suspect]
     Active Substance: IMATINIB MESYLATE
     Route: 048
     Dates: start: 20180924, end: 20181024

REACTIONS (2)
  - Anaemia [None]
  - Thrombocytopenia [None]

NARRATIVE: CASE EVENT DATE: 20181017
